FAERS Safety Report 23219246 (Version 1)
Quarter: 2023Q4

REPORT INFORMATION
  Report Type: Report from Study
  Country: NL (occurrence: NL)
  Receive Date: 20231122
  Receipt Date: 20231122
  Transmission Date: 20240110
  Serious: Yes (Other)
  Sender: FDA-Public Use
  Company Number: NL-TEVA-2023-NL-2948212

PATIENT
  Age: 74 Year
  Sex: Female

DRUGS (1)
  1. COPAXONE [Suspect]
     Active Substance: GLATIRAMER ACETATE
     Indication: Relapsing multiple sclerosis
     Dosage: 40 MG/ML; 3 TIMES IN 1 WEEK
     Route: 058

REACTIONS (2)
  - Pertussis [Unknown]
  - Asthenia [Unknown]

NARRATIVE: CASE EVENT DATE: 20230912
